FAERS Safety Report 4588330-4 (Version None)
Quarter: 2005Q1

REPORT INFORMATION
  Report Type: 
  Country: None (occurrence: None)
  Receive Date: 20050215
  Receipt Date: 20050215
  Transmission Date: 20050727
  Serious: Yes (Hospitalization)
  Sender: FDA-Public Use
  Company Number: None

PATIENT
  Sex: Male
  Weight: 72.5 kg

DRUGS (9)
  1. ZOLADEX [Suspect]
     Indication: PROSTATE CANCER
     Dosage: 10.8MG SQ IMPLANT
     Route: 058
     Dates: start: 20041229
  2. MEGACE [Suspect]
     Indication: PROSTATE CANCER
     Dosage: 40 MG QD PO
     Route: 048
     Dates: start: 20050107
  3. PSYLLIUM [Concomitant]
  4. ASPIRIN [Concomitant]
  5. ATORVASTATIN CALCIUM [Concomitant]
  6. FLUNISOLIDE NASAL SPRAY [Concomitant]
  7. NIFEDIPINE [Concomitant]
  8. LISINOPRIL [Concomitant]
  9. TERAZOSIN HCL [Concomitant]

REACTIONS (5)
  - PAIN [None]
  - PRURITUS GENERALISED [None]
  - RASH [None]
  - SKIN LESION [None]
  - URTICARIA [None]
